FAERS Safety Report 4543928-4 (Version None)
Quarter: 2005Q1

REPORT INFORMATION
  Report Type: 
  Country: None (occurrence: None)
  Receive Date: 20050104
  Receipt Date: 20041223
  Transmission Date: 20050727
  Serious: Yes (Other)
  Sender: FDA-Public Use
  Company Number: US-JNJFOC-20041206595

PATIENT
  Sex: Female

DRUGS (4)
  1. DURAGESIC [Suspect]
     Route: 062
  2. DILANTIN [Concomitant]
     Route: 049
  3. FLEXERIL [Concomitant]
     Route: 049
  4. INDOCIN [Concomitant]
     Route: 049

REACTIONS (4)
  - ABDOMINAL PAIN [None]
  - CONVULSION [None]
  - DRUG EXPOSURE DURING PREGNANCY [None]
  - ECTOPIC PREGNANCY [None]
